FAERS Safety Report 7826957-4 (Version None)
Quarter: 2011Q4

REPORT INFORMATION
  Report Type: 
  Country: None (occurrence: None)
  Receive Date: 20111020
  Receipt Date: 20111011
  Transmission Date: 20120403
  Serious: Yes (Other)
  Sender: FDA-Public Use
  Company Number: US-JNJFOC-20111004997

PATIENT
  Age: 77 Year
  Sex: Female

DRUGS (5)
  1. RECLAST [Concomitant]
     Route: 065
  2. CELEBREX [Concomitant]
     Route: 065
  3. METHOTREXATE [Concomitant]
     Route: 065
  4. REMICADE [Suspect]
     Indication: RHEUMATOID ARTHRITIS
     Route: 042
     Dates: start: 20090317, end: 20110930
  5. ADVAIR DISKUS 100/50 [Concomitant]
     Route: 065

REACTIONS (1)
  - LUNG NEOPLASM MALIGNANT [None]
